FAERS Safety Report 6168821-5 (Version None)
Quarter: 2009Q2

REPORT INFORMATION
  Report Type: 
  Country: None (occurrence: None)
  Receive Date: 20090424
  Receipt Date: 20090424
  Transmission Date: 20091009
  Serious: No
  Sender: FDA-Public Use
  Company Number: None

PATIENT
  Sex: Male
  Weight: 121.36 kg

DRUGS (9)
  1. LISINOPRIL [Suspect]
     Dosage: 5 MG TABLET QD ORAL
     Route: 048
     Dates: start: 20090227, end: 20090423
  2. ATENOLOL [Concomitant]
  3. FLUNISOLIDE NASAL [Concomitant]
  4. GLUCOPHAGE [Concomitant]
  5. NAPROXEN [Concomitant]
  6. NORTRIPTYLINE HCL [Concomitant]
  7. ONE TOUCH LANCETS [Concomitant]
  8. PRILOSEC OTC (OMEPRAZOLE OTC) [Concomitant]
  9. VITAMIN B12 [Concomitant]

REACTIONS (1)
  - COUGH [None]
